FAERS Safety Report 9034281 (Version 1)
Quarter: 2013Q1

REPORT INFORMATION
  Report Type: Spontaneous
  Country: US (occurrence: None)
  Receive Date: 20130116
  Receipt Date: 20130116
  Transmission Date: 20140127
  Serious: No
  Sender: FDA-Public Use
  Company Number: None

PATIENT
  Age: 41 Year
  Sex: Female
  Weight: 114.31 kg

DRUGS (2)
  1. COLESTID [Suspect]
     Dosage: 1 PACKET ONCE DAILY
     Dates: start: 20121229, end: 20130112
  2. DAILY MOISTURIZING EQUATE [Suspect]
     Dosage: AS OFTEN AS NEEDED
     Dates: start: 20130109, end: 20130109

REACTIONS (3)
  - Rash [None]
  - Mobility decreased [None]
  - Pain [None]
